FAERS Safety Report 8236322-6 (Version None)
Quarter: 2012Q1

REPORT INFORMATION
  Report Type: 
  Country: None (occurrence: None)
  Receive Date: 20120327
  Receipt Date: 20120315
  Transmission Date: 20120608
  Serious: Yes (Other)
  Sender: FDA-Public Use
  Company Number: US-JNJFOC-20120307898

PATIENT
  Sex: Male
  Weight: 88 kg

DRUGS (5)
  1. REMICADE [Suspect]
     Indication: COLITIS
     Route: 042
     Dates: start: 20110101, end: 20111001
  2. REMICADE [Suspect]
     Route: 042
     Dates: start: 20090101, end: 20110101
  3. STEROIDS NOS [Suspect]
     Indication: COLITIS
     Route: 065
     Dates: start: 20100601
  4. ASACOL [Concomitant]
     Indication: COLITIS
     Route: 048
  5. AZATHIOPRINE [Concomitant]
     Indication: COLITIS
     Route: 048

REACTIONS (5)
  - OSTEONECROSIS [None]
  - HERPES ZOSTER [None]
  - OROPHARYNGEAL PAIN [None]
  - HERPES VIRUS INFECTION [None]
  - COLITIS [None]
